FAERS Safety Report 7152983-7 (Version None)
Quarter: 2010Q4

REPORT INFORMATION
  Report Type: 
  Country: None (occurrence: None)
  Receive Date: 20101213
  Receipt Date: 20101203
  Transmission Date: 20110411
  Serious: Yes (Other)
  Sender: FDA-Public Use
  Company Number: TR-BAXTER-2010BH029387

PATIENT
  Age: 14 Year
  Sex: Male
  Weight: 59 kg

DRUGS (7)
  1. GAMMAGARD LIQUID [Suspect]
     Indication: ACUTE MYELOID LEUKAEMIA
     Route: 042
     Dates: start: 20101130, end: 20101130
  2. GAMMAGARD LIQUID [Suspect]
     Indication: SECONDARY IMMUNODEFICIENCY
     Route: 042
     Dates: start: 20101130, end: 20101130
  3. GAMMAGARD LIQUID [Suspect]
     Route: 042
     Dates: start: 20101130, end: 20101130
  4. GAMMAGARD LIQUID [Suspect]
     Route: 042
     Dates: start: 20101130, end: 20101130
  5. GAMMAGARD LIQUID [Suspect]
     Route: 042
     Dates: start: 20101130, end: 20101130
  6. GAMMAGARD LIQUID [Suspect]
     Route: 042
     Dates: start: 20101130, end: 20101130
  7. ACYCLOVIR SODIUM [Concomitant]

REACTIONS (3)
  - CHILLS [None]
  - COLD SWEAT [None]
  - PYREXIA [None]
